FAERS Safety Report 6011509-1 (Version None)
Quarter: 2008Q4

REPORT INFORMATION
  Report Type: 
  Country: None (occurrence: None)
  Receive Date: 20081218
  Receipt Date: 19980106
  Transmission Date: 20090506
  Serious: Yes (Death, Hospitalization, Other)
  Sender: FDA-Public Use
  Company Number: US-ROCHE-89647

PATIENT
  Sex: Female
  Weight: 80.3 kg

DRUGS (11)
  1. INTERFERON ALFA-2A [Suspect]
     Indication: HEPATITIS C
     Route: 058
     Dates: start: 19970903, end: 19971010
  2. INTERFERON ALFA-2A [Suspect]
     Route: 058
     Dates: start: 19970210, end: 19970303
  3. INTERFERON ALFA-2A [Suspect]
     Route: 058
     Dates: start: 19970303, end: 19970421
  4. INTERFERON ALFA-2A [Suspect]
     Route: 058
     Dates: start: 19970421, end: 19970903
  5. HUMULIN 70/30 [Concomitant]
  6. LANOXIN [Concomitant]
  7. CALAN [Concomitant]
  8. LASIX [Concomitant]
  9. COUMADIN [Concomitant]
  10. ELAVIL [Concomitant]
     Dosage: AT BEDTIME
  11. ALDACTONE [Concomitant]

REACTIONS (6)
  - ANOXIC ENCEPHALOPATHY [None]
  - CARDIAC ARREST [None]
  - CARDIAC FAILURE CONGESTIVE [None]
  - DEATH [None]
  - DEMENTIA [None]
  - ENCEPHALOPATHY [None]
